FAERS Safety Report 25504970 (Version 2)
Quarter: 2025Q3

REPORT INFORMATION
  Report Type: Spontaneous
  Country: EU (occurrence: EU)
  Receive Date: 20250702
  Receipt Date: 20250715
  Transmission Date: 20251021
  Serious: No
  Sender: TG THERAPEUTICS
  Company Number: EU-TG THERAPEUTICS INC.-TGT005412

PATIENT

DRUGS (1)
  1. BRIUMVI [Suspect]
     Active Substance: UBLITUXIMAB-XIIY
     Indication: Product used for unknown indication
     Route: 042
     Dates: start: 20250508, end: 20250508

REACTIONS (1)
  - Transaminases increased [Unknown]

NARRATIVE: CASE EVENT DATE: 20250101
